FAERS Safety Report 14231396 (Version 1)
Quarter: 2017Q4

REPORT INFORMATION
  Report Type: Spontaneous
  Country: US (occurrence: US)
  Receive Date: 20171128
  Receipt Date: 20171128
  Transmission Date: 20180321
  Serious: No
  Sender: FDA-Public Use
  Company Number: US-JNJFOC-20100708807

PATIENT
  Sex: Male
  Weight: 113.4 kg

DRUGS (9)
  1. TYLENOL WITH CODEINE [Suspect]
     Active Substance: ACETAMINOPHEN\CODEINE PHOSPHATE
     Indication: PAIN
     Route: 048
  2. OMEGA III [Concomitant]
     Indication: BLOOD PRESSURE ABNORMAL
     Route: 065
  3. OMEGA 9 FATTY ACIDS [Concomitant]
     Indication: BLOOD PRESSURE ABNORMAL
     Route: 065
  4. ARMOUR THYROID [Concomitant]
     Active Substance: THYROID, PORCINE
     Indication: PRODUCT USED FOR UNKNOWN INDICATION
     Route: 065
  5. TYLENOL WITH CODEINE [Suspect]
     Active Substance: ACETAMINOPHEN\CODEINE PHOSPHATE
     Indication: PAIN
     Dosage: 300MG/30MG
     Route: 048
     Dates: start: 201709
  6. OMEGA-6 FATTY ACIDS [Concomitant]
     Active Substance: OMEGA-6 FATTY ACIDS
     Indication: BLOOD PRESSURE ABNORMAL
     Route: 065
  7. COQ10 [Concomitant]
     Active Substance: UBIDECARENONE
     Indication: BLOOD PRESSURE ABNORMAL
     Route: 065
  8. EVENING PRIMROSE  OIL [Concomitant]
     Active Substance: EVENING PRIMROSE OIL
     Indication: BLOOD PRESSURE ABNORMAL
     Route: 065
  9. MAGNESIUM [Concomitant]
     Active Substance: MAGNESIUM
     Indication: BLOOD PRESSURE ABNORMAL
     Route: 065

REACTIONS (4)
  - Nausea [Not Recovered/Not Resolved]
  - Headache [Not Recovered/Not Resolved]
  - Drug ineffective [Not Recovered/Not Resolved]
  - Product odour abnormal [Unknown]

NARRATIVE: CASE EVENT DATE: 2010
